FAERS Safety Report 7242598-4 (Version None)
Quarter: 2011Q1

REPORT INFORMATION
  Report Type: 
  Country: None (occurrence: None)
  Receive Date: 20110125
  Receipt Date: 20110116
  Transmission Date: 20110831
  Serious: Yes (Other)
  Sender: FDA-Public Use
  Company Number: AU-PFIZER INC-2011010582

PATIENT

DRUGS (1)
  1. EFFEXOR XR [Suspect]
     Indication: ANXIETY
     Dosage: UNK

REACTIONS (4)
  - UNEVALUABLE EVENT [None]
  - AUTISM SPECTRUM DISORDER [None]
  - SUICIDAL BEHAVIOUR [None]
  - DEPRESSION [None]
